FAERS Safety Report 24606609 (Version 2)
Quarter: 2024Q4

REPORT INFORMATION
  Report Type: Report from Study
  Country: GB (occurrence: GB)
  Receive Date: 20241112
  Receipt Date: 20241114
  Transmission Date: 20250115
  Serious: Yes (Other)
  Sender: NOVARTIS
  Company Number: GB-002147023-NVSC2024GB216861

PATIENT
  Sex: Female

DRUGS (2)
  1. COSENTYX [Suspect]
     Active Substance: SECUKINUMAB
     Indication: Product used for unknown indication
     Dosage: LOADING DOSES
     Route: 065
  2. COSENTYX [Suspect]
     Active Substance: SECUKINUMAB
     Dosage: UNK, QMO (FIRST MONTHLY INJECTION)
     Route: 050

REACTIONS (5)
  - Lower respiratory tract infection [Recovered/Resolved]
  - Tonsillitis [Recovered/Resolved]
  - Influenza [Unknown]
  - Tongue ulceration [Recovered/Resolved]
  - Malaise [Recovered/Resolved]
